FAERS Safety Report 22190387 (Version 1)
Quarter: 2023Q2

REPORT INFORMATION
  Report Type: Spontaneous
  Country: US (occurrence: US)
  Receive Date: 20230410
  Receipt Date: 20230410
  Transmission Date: 20230722
  Serious: No
  Sender: FDA-Public Use
  Company Number: US-APOTEX-2023AP005357

PATIENT
  Sex: Female

DRUGS (3)
  1. BRIMONIDINE TARTRATE [Suspect]
     Active Substance: BRIMONIDINE TARTRATE
     Indication: Eye disorder
     Dosage: 2 DOSAGE FORM, BID (1 DROP IN EACH EYE TWICE A DAY)
     Route: 047
     Dates: end: 20230307
  2. TIMOLOL [Concomitant]
     Active Substance: TIMOLOL
     Indication: Eye disorder
     Dosage: 2 DOSAGE FORM, BID
     Route: 047
  3. TRAVOPROST [Concomitant]
     Active Substance: TRAVOPROST
     Indication: Eye disorder
     Dosage: 2 DOSAGE FORM, Q.H.S. (BEEN USING IT FOR 10 YEARS)
     Route: 047

REACTIONS (2)
  - Recalled product administered [Unknown]
  - Vision blurred [Not Recovered/Not Resolved]

NARRATIVE: CASE EVENT DATE: 20230101
